FAERS Safety Report 19372534 (Version 3)
Quarter: 2022Q2

REPORT INFORMATION
  Report Type: Spontaneous
  Country: US (occurrence: US)
  Receive Date: 20210604
  Receipt Date: 20220603
  Transmission Date: 20220721
  Serious: Yes (Other)
  Sender: FDA-Public Use
  Company Number: US-009507513-2101USA001393

PATIENT
  Sex: Male
  Weight: 75.9 kg

DRUGS (2)
  1. ZOSTAVAX [Suspect]
     Active Substance: VARICELLA-ZOSTER VIRUS STRAIN OKA/MERCK LIVE ANTIGEN
     Indication: Prophylaxis
     Dosage: .65 MILLILITER
     Route: 058
     Dates: start: 20141119
  2. STERILE DILUENT (WATER) [Suspect]
     Active Substance: WATER
     Indication: Prophylaxis
     Dosage: UNK
     Route: 058
     Dates: start: 20141119

REACTIONS (12)
  - Blindness [Unknown]
  - Cataract [Unknown]
  - Nephrolithiasis [Not Recovered/Not Resolved]
  - Retinal tear [Unknown]
  - Balance disorder [Unknown]
  - Diplopia [Unknown]
  - Gait disturbance [Unknown]
  - Colonoscopy [Unknown]
  - Flank pain [Not Recovered/Not Resolved]
  - Polyp [Unknown]
  - Post procedural infection [Unknown]
  - Herpes zoster [Unknown]

NARRATIVE: CASE EVENT DATE: 20160101
